FAERS Safety Report 24192577 (Version 1)
Quarter: 2024Q3

REPORT INFORMATION
  Report Type: Spontaneous
  Country: PL (occurrence: PL)
  Receive Date: 20240809
  Receipt Date: 20240809
  Transmission Date: 20241016
  Serious: Yes (Life-Threatening)
  Sender: BOEHRINGER INGELHEIM
  Company Number: None

PATIENT
  Age: 91 Year
  Sex: Male
  Weight: 70 kg

DRUGS (1)
  1. PRADAXA [Suspect]
     Active Substance: DABIGATRAN ETEXILATE MESYLATE
     Indication: Atrial fibrillation
     Route: 048
     Dates: start: 20180327, end: 20200509

REACTIONS (5)
  - Gastrointestinal haemorrhage [Recovered/Resolved]
  - Haemorrhagic diathesis [Recovered/Resolved]
  - Coagulopathy [Recovered/Resolved]
  - Extravasation blood [Recovered/Resolved]
  - Haematuria [Recovered/Resolved]

NARRATIVE: CASE EVENT DATE: 20200509
